FAERS Safety Report 6293274-6 (Version None)
Quarter: 2009Q3

REPORT INFORMATION
  Report Type: 
  Country: None (occurrence: None)
  Receive Date: 20090731
  Receipt Date: 20090721
  Transmission Date: 20100115
  Serious: Yes (Hospitalization)
  Sender: FDA-Public Use
  Company Number: IE-JNJFOC-20090706982

PATIENT
  Age: 28 Year
  Sex: Female

DRUGS (2)
  1. REMICADE [Suspect]
     Dosage: SECOND DOSE
     Route: 042
  2. REMICADE [Suspect]
     Indication: COLITIS ULCERATIVE
     Dosage: FIRST DOSE
     Route: 042

REACTIONS (9)
  - ARTHRALGIA [None]
  - FACE INJURY [None]
  - FALL [None]
  - FATIGUE [None]
  - GROIN PAIN [None]
  - HYPERHIDROSIS [None]
  - JOINT INJURY [None]
  - JOINT STIFFNESS [None]
  - SYNCOPE [None]
